FAERS Safety Report 21452627 (Version 1)
Quarter: 2022Q4

REPORT INFORMATION
  Report Type: Spontaneous
  Country: US (occurrence: None)
  Receive Date: 20221012
  Receipt Date: 20221012
  Transmission Date: 20230112
  Serious: Yes (Hospitalization)
  Sender: FDA-Public Use
  Company Number: None

PATIENT
  Age: 77 Year
  Sex: Male
  Weight: 53.12 kg

DRUGS (10)
  1. DAURISMO [Suspect]
     Active Substance: GLASDEGIB
     Indication: Acute myeloid leukaemia
     Dosage: FREQUENCY : DAILY;?
     Route: 048
     Dates: start: 202209
  2. CYTARABINE [Suspect]
     Active Substance: CYTARABINE
     Indication: Acute myeloid leukaemia
     Dosage: FREQUENCY : TWICE A DAY;?
     Route: 058
     Dates: start: 202209
  3. ACETAMINOPHEN [Concomitant]
     Active Substance: ACETAMINOPHEN
  4. ACYCLOVIR [Concomitant]
     Active Substance: ACYCLOVIR
  5. ALLOPURINOL [Concomitant]
     Active Substance: ALLOPURINOL
  6. TB SYRINGE [Concomitant]
  7. FLUCONAZOLE [Concomitant]
     Active Substance: FLUCONAZOLE
  8. GLASDEGIB [Concomitant]
     Active Substance: GLASDEGIB
  9. HYDROXYUREA [Concomitant]
     Active Substance: HYDROXYUREA
  10. LEVOFLOXACIN [Concomitant]
     Active Substance: LEVOFLOXACIN

REACTIONS (2)
  - Seizure [None]
  - Cerebral haemorrhage [None]
